FAERS Safety Report 5719169-1 (Version None)
Quarter: 2008Q2

REPORT INFORMATION
  Report Type: 
  Country: None (occurrence: None)
  Receive Date: 20080428
  Receipt Date: 20080425
  Transmission Date: 20081010
  Serious: Yes (Other)
  Sender: FDA-Public Use
  Company Number: US-BAYER-200715565NA

PATIENT
  Sex: Female

DRUGS (1)
  1. MIRENA [Suspect]
     Dosage: TOTAL DAILY DOSE: 20 ?G
     Route: 015

REACTIONS (3)
  - ARTHRALGIA [None]
  - OSTEOARTHRITIS [None]
  - OSTEONECROSIS [None]
